FAERS Safety Report 17294624 (Version 1)
Quarter: 2020Q1

REPORT INFORMATION
  Report Type: Spontaneous
  Country: US (occurrence: US)
  Receive Date: 20200121
  Receipt Date: 20200121
  Transmission Date: 20200409
  Serious: No
  Sender: FDA-Public Use
  Company Number: US-MYLANLABS-2020M1001202

PATIENT

DRUGS (1)
  1. WIXELA INHUB [Suspect]
     Active Substance: FLUTICASONE PROPIONATE\SALMETEROL XINAFOATE
     Indication: PRODUCT USED FOR UNKNOWN INDICATION
     Dosage: UNK

REACTIONS (6)
  - Oropharyngeal pain [Recovering/Resolving]
  - Emotional disorder [Unknown]
  - Vocal cord disorder [Recovering/Resolving]
  - Aphonia [Recovering/Resolving]
  - Dysphonia [Recovering/Resolving]
  - Laryngitis [Recovering/Resolving]
